FAERS Safety Report 6326799-5 (Version None)
Quarter: 2009Q3

REPORT INFORMATION
  Report Type: 
  Country: None (occurrence: None)
  Receive Date: 20090818
  Receipt Date: 20090506
  Transmission Date: 20100115
  Serious: No
  Sender: FDA-Public Use
  Company Number: WAES 0905USA01018

PATIENT
  Age: 65 Year
  Sex: Female
  Weight: 50.8029 kg

DRUGS (3)
  1. JANUVIA [Suspect]
     Indication: DIABETES MELLITUS INADEQUATE CONTROL
     Dosage: 100 MG/DAILY/PO
     Route: 048
     Dates: start: 20090101, end: 20090101
  2. JANUVIA [Suspect]
     Indication: DIABETES MELLITUS INADEQUATE CONTROL
     Dosage: 100 MG/DAILY/PO
     Route: 048
     Dates: start: 20090322, end: 20090324
  3. GLUCORED FORTE [Concomitant]

REACTIONS (2)
  - PRURITUS GENERALISED [None]
  - URTICARIA [None]
